FAERS Safety Report 17545423 (Version 1)
Quarter: 2020Q1

REPORT INFORMATION
  Report Type: Spontaneous
  Country: US (occurrence: US)
  Receive Date: 20200316
  Receipt Date: 20200316
  Transmission Date: 20200409
  Serious: No
  Sender: FDA-Public Use
  Company Number: US-ASTRAZENECA-2020SE34964

PATIENT
  Sex: Female
  Weight: 4.5 kg

DRUGS (4)
  1. SYNAGIS [Suspect]
     Active Substance: PALIVIZUMAB
     Route: 030
     Dates: start: 20200213
  2. FUROSEMIDE. [Concomitant]
     Active Substance: FUROSEMIDE
  3. SODIUM CHLORIDE. [Concomitant]
     Active Substance: SODIUM CHLORIDE
     Dosage: 0.9 % SYRINGE
  4. SYNAGIS [Suspect]
     Active Substance: PALIVIZUMAB
     Route: 030

REACTIONS (4)
  - Foaming at mouth [Unknown]
  - Vomiting [Unknown]
  - Skin discolouration [Unknown]
  - Crying [Unknown]
